FAERS Safety Report 17931855 (Version 2)
Quarter: 2020Q3

REPORT INFORMATION
  Report Type: Spontaneous
  Country: FR (occurrence: FR)
  Receive Date: 20200623
  Receipt Date: 20200715
  Transmission Date: 20201103
  Serious: Yes (Hospitalization)
  Sender: FDA-Public Use
  Company Number: FR-JNJFOC-20200622667

PATIENT
  Age: 71 Year
  Sex: Female

DRUGS (2)
  1. STELARA [Suspect]
     Active Substance: USTEKINUMAB
     Indication: MULTIPLE SCLEROSIS
     Dosage: 2 INJECTIONS.?BATCH NUMBER: ICHICSR?EVHUMAN?20200702160807_LSZKOF
     Route: 058
     Dates: start: 202001
  2. STELARA [Suspect]
     Active Substance: USTEKINUMAB
     Dosage: 2ND INJECTION?BATCH NUMBER: ICHICSR?EVHUMAN?20200702160807_LSZKOF
     Route: 058
     Dates: start: 20200427

REACTIONS (5)
  - Mania [Not Recovered/Not Resolved]
  - Off label use [Unknown]
  - Persecutory delusion [Not Recovered/Not Resolved]
  - Psychomotor hyperactivity [Not Recovered/Not Resolved]
  - Product use in unapproved indication [Unknown]

NARRATIVE: CASE EVENT DATE: 202001
